FAERS Safety Report 20484705 (Version 4)
Quarter: 2022Q2

REPORT INFORMATION
  Report Type: Spontaneous
  Country: US (occurrence: US)
  Receive Date: 20220217
  Receipt Date: 20220404
  Transmission Date: 20220721
  Serious: No
  Sender: FDA-Public Use
  Company Number: US-BIOGEN-2022BI01098132

PATIENT
  Sex: Male

DRUGS (6)
  1. PLEGRIDY [Suspect]
     Active Substance: PEGINTERFERON BETA-1A
     Indication: Multiple sclerosis
     Dosage: INJECT 1 PEN (63 MCG) SUBCUTANEOUSLY ON DAY 1, AND INJECT 1 (94 MCG) ON DAY 15
     Route: 058
     Dates: start: 2022
  2. PLEGRIDY [Suspect]
     Active Substance: PEGINTERFERON BETA-1A
     Dosage: INJECT 1 PEN (63 MCG) SUBCUTANEOUSLY ON DAY 1, AND INJECT 1 (94 MCG) ON DAY 15
     Route: 058
     Dates: start: 2022
  3. PLEGRIDY [Suspect]
     Active Substance: PEGINTERFERON BETA-1A
     Dosage: INJECT 1 PEN (125 MCG/0.5ML) SUBCUTANEOUSLY EVERY 14 DAYS
     Route: 058
  4. PLEGRIDY [Suspect]
     Active Substance: PEGINTERFERON BETA-1A
     Dosage: INJECT 1 PEN (0.5ML) SUBCUTANEOUSLY EVERY OTHER WEEK
     Route: 058
  5. TYLENOL [Concomitant]
     Active Substance: ACETAMINOPHEN
     Route: 065
  6. IBUPROFEN [Concomitant]
     Active Substance: IBUPROFEN
     Route: 065

REACTIONS (6)
  - Injection site swelling [Unknown]
  - Injection site pain [Unknown]
  - Injection site rash [Not Recovered/Not Resolved]
  - Injection site bruising [Unknown]
  - Headache [Unknown]
  - Injection site pain [Unknown]

NARRATIVE: CASE EVENT DATE: 20220101
